FAERS Safety Report 24673999 (Version 1)
Quarter: 2024Q4

REPORT INFORMATION
  Report Type: Spontaneous
  Country: US (occurrence: US)
  Receive Date: 20241128
  Receipt Date: 20241128
  Transmission Date: 20250114
  Serious: Yes (Other)
  Sender: RANBAXY
  Company Number: US-SUN PHARMACEUTICAL INDUSTRIES LTD-2024R1-480762

PATIENT
  Age: 69 Year
  Sex: Male

DRUGS (2)
  1. PREDNISONE [Suspect]
     Active Substance: PREDNISONE
     Indication: Nodule
     Dosage: 60 MILLIGRAM, DAILY
     Route: 065
  2. TRIAMCINOLONE [Suspect]
     Active Substance: TRIAMCINOLONE
     Indication: Nodule
     Dosage: UNK
     Route: 065

REACTIONS (2)
  - Therapeutic response decreased [Unknown]
  - Drug resistance [Unknown]
